FAERS Safety Report 10036326 (Version 1)
Quarter: 2014Q1

REPORT INFORMATION
  Report Type: Spontaneous
  Country: GB (occurrence: GB)
  Receive Date: 20140325
  Receipt Date: 20140325
  Transmission Date: 20141002
  Serious: Yes (Disabling)
  Sender: FDA-Public Use
  Company Number: PHHY2014GB031502

PATIENT
  Age: 70 Year
  Sex: Female
  Weight: 64 kg

DRUGS (9)
  1. METFORMIN [Suspect]
     Dates: start: 20140218
  2. ASACOL [Concomitant]
     Dates: start: 20131114
  3. ATORVASTATIN [Concomitant]
     Dates: start: 20131114
  4. CLOBETASONE BUTYRATE [Concomitant]
     Dates: start: 20140218
  5. EZETIMIBE [Concomitant]
     Dates: start: 20131114
  6. HYDROXOCOBALAMIN [Concomitant]
     Dates: start: 20131114
  7. IRBESARTAN [Concomitant]
     Dates: start: 20131114
  8. OMEPRAZOLE [Concomitant]
     Dates: start: 20131114
  9. PARACETAMOL [Concomitant]
     Dates: start: 20140116, end: 20140131

REACTIONS (2)
  - Dizziness [Recovering/Resolving]
  - Diarrhoea [Unknown]
